FAERS Safety Report 6059122-4 (Version None)
Quarter: 2009Q1

REPORT INFORMATION
  Report Type: 
  Country: None (occurrence: None)
  Receive Date: 20090130
  Receipt Date: 20090120
  Transmission Date: 20090719
  Serious: Yes (Death, Hospitalization)
  Sender: FDA-Public Use
  Company Number: FR-JNJFOC-20080901190

PATIENT
  Sex: Female

DRUGS (10)
  1. TOPALGIC [Suspect]
     Indication: PAIN IN EXTREMITY
     Route: 048
     Dates: start: 20080820, end: 20080824
  2. CRESTOR [Concomitant]
  3. DAFALGAN [Concomitant]
  4. COVERSYL [Concomitant]
  5. FLUDEX [Concomitant]
  6. DITROPAN [Concomitant]
     Dosage: 1/2 A TABLET
  7. LEVOTHYROX [Concomitant]
  8. KARDEGIC [Concomitant]
  9. LOVENOX [Concomitant]
  10. DRIPTANE [Concomitant]

REACTIONS (13)
  - CEREBROVASCULAR ACCIDENT [None]
  - CEREBROVASCULAR INSUFFICIENCY [None]
  - DEATH [None]
  - DRY MOUTH [None]
  - EPILEPSY [None]
  - MIOSIS [None]
  - MOVEMENT DISORDER [None]
  - NAUSEA [None]
  - PRURITUS [None]
  - SEDATION [None]
  - SEROTONIN SYNDROME [None]
  - SOMNOLENCE [None]
  - VOMITING [None]
